FAERS Safety Report 14848292 (Version 1)
Quarter: 2018Q2

REPORT INFORMATION
  Report Type: Spontaneous
  Country: US (occurrence: US)
  Receive Date: 20180419
  Receipt Date: 20180419
  Transmission Date: 20180711
  Serious: Yes (Other)
  Sender: FDA-Public Use
  Company Number: None

PATIENT
  Age: 69 Year
  Sex: Female
  Weight: 100.35 kg

DRUGS (9)
  1. ATORVASTATIN [Concomitant]
     Active Substance: ATORVASTATIN
  2. CONTRAVE [Suspect]
     Active Substance: BUPROPION HYDROCHLORIDE\NALTREXONE HYDROCHLORIDE
     Indication: WEIGHT DECREASED
     Dosage: ?          QUANTITY:1 DF DOSAGE FORM;?
     Route: 048
     Dates: start: 20180418, end: 20180419
  3. FOLIC ACID. [Concomitant]
     Active Substance: FOLIC ACID
  4. OMEPRAZOLE DR [Concomitant]
     Active Substance: OMEPRAZOLE
  5. METOPROLOL. [Concomitant]
     Active Substance: METOPROLOL
  6. ESTRADIOL. [Concomitant]
     Active Substance: ESTRADIOL
  7. SINGULAIR [Concomitant]
     Active Substance: MONTELUKAST SODIUM
  8. PRAMIPEXOLE. [Concomitant]
     Active Substance: PRAMIPEXOLE
  9. GABAPENTIN. [Concomitant]
     Active Substance: GABAPENTIN

REACTIONS (6)
  - Heart rate increased [None]
  - Palpitations [None]
  - Feeling hot [None]
  - Blood pressure increased [None]
  - Malaise [None]
  - Hyperhidrosis [None]

NARRATIVE: CASE EVENT DATE: 20180418
